FAERS Safety Report 6612442-4 (Version None)
Quarter: 2010Q1

REPORT INFORMATION
  Report Type: 
  Country: None (occurrence: None)
  Receive Date: 20100303
  Receipt Date: 20100218
  Transmission Date: 20100710
  Serious: Yes (Hospitalization)
  Sender: FDA-Public Use
  Company Number: FR-WYE-H13858910

PATIENT
  Age: 59 Year
  Sex: Female

DRUGS (7)
  1. CORDARONE [Suspect]
     Route: 048
  2. LEVOTHYROX [Suspect]
     Route: 048
  3. TAHOR [Suspect]
     Route: 048
  4. TAHOR [Suspect]
     Route: 048
  5. FLECAINIDE ACETATE [Suspect]
     Route: 048
  6. LASILIX [Suspect]
     Route: 048
  7. NAVELBINE [Suspect]
     Dosage: UNKNOWN DOSE/WEEKLY
     Route: 042
     Dates: start: 20091124, end: 20091221

REACTIONS (3)
  - AREFLEXIA [None]
  - MUSCULAR WEAKNESS [None]
  - MYOPATHY [None]
